FAERS Safety Report 9541927 (Version 2)
Quarter: 2013Q4

REPORT INFORMATION
  Report Type: Spontaneous
  Country: IT (occurrence: IT)
  Receive Date: 20130923
  Receipt Date: 20131028
  Transmission Date: 20140711
  Serious: Yes (Hospitalization)
  Sender: FDA-Public Use
  Company Number: PHHY2013IT104899

PATIENT
  Age: 45 Year
  Sex: Female

DRUGS (2)
  1. GLIVEC [Suspect]
     Indication: CHRONIC MYELOID LEUKAEMIA
     Dosage: 400 MG, DAILY
     Dates: start: 201207, end: 201309
  2. ANASTROZOLE SANDOZ [Suspect]
     Dosage: UNK UKN, UNK
     Dates: start: 201303, end: 201309

REACTIONS (3)
  - Bile duct stone [Unknown]
  - Yellow skin [Unknown]
  - Transaminases increased [Unknown]
